FAERS Safety Report 9262502 (Version 1)
Quarter: 2013Q2

REPORT INFORMATION
  Report Type: Spontaneous
  Country: US (occurrence: None)
  Receive Date: 20130426
  Receipt Date: 20130426
  Transmission Date: 20140414
  Serious: No
  Sender: FDA-Public Use
  Company Number: None

PATIENT
  Sex: Male
  Weight: 101.15 kg

DRUGS (1)
  1. VIAGRA 100 MG PFIZER [Suspect]
     Dosage: 1 AS DIRECTED, 1-2 WEEKLY

REACTIONS (1)
  - Drug ineffective [None]
